FAERS Safety Report 19165570 (Version 4)
Quarter: 2022Q3

REPORT INFORMATION
  Report Type: Spontaneous
  Country: IN (occurrence: IN)
  Receive Date: 20210421
  Receipt Date: 20220923
  Transmission Date: 20221026
  Serious: Yes (Other)
  Sender: FDA-Public Use
  Company Number: IN-PFIZER INC-2020012089

PATIENT
  Age: 59 Year
  Sex: Male

DRUGS (11)
  1. SUTENT [Suspect]
     Active Substance: SUNITINIB MALATE
     Indication: Metastatic renal cell carcinoma
     Dosage: 50 MG, CYCLIC (ONCE DAILY)
     Route: 048
     Dates: start: 20200109, end: 2020
  2. SUTENT [Suspect]
     Active Substance: SUNITINIB MALATE
     Dosage: UNK, CYCLIC( IN 3RD  4 TH 5 TH C )
  3. SUTENT [Suspect]
     Active Substance: SUNITINIB MALATE
     Dosage: 12.5 MG, CYCLIC (FOR 14DAYS)
  4. SUTENT [Suspect]
     Active Substance: SUNITINIB MALATE
     Dosage: 37.5 MG, CYCLIC (12.5 3-0-0 X 14DAYS X 2 WEEKS)
  5. SUTENT [Suspect]
     Active Substance: SUNITINIB MALATE
     Dosage: 12.5 MG, CYCLIC (2-0-0 X 14 DAYS - 7 DAYS OFF X 3 MONTHS)
  6. SUTENT [Suspect]
     Active Substance: SUNITINIB MALATE
     Dosage: 12.5 MG, CYCLIC (4-0-0 X 2 WEEKS -}1 WEEK OFF 30D)
  7. OPTINEURON [CALCIUM PANTOTHENATE;CYANOCOBALAMIN;NICOTINAMIDE;PYRIDOXIN [Concomitant]
     Dosage: 200, UNK
     Route: 030
  8. PAN [Concomitant]
     Dosage: 1 DF, UNK
  9. PAN [Concomitant]
     Dosage: 1 DF, 1X/DAY (1-0-0)
  10. SHELCAL [CALCIUM CARBONATE;COLECALCIFEROL] [Concomitant]
     Dosage: UNK
  11. SHELCAL [CALCIUM CARBONATE;COLECALCIFEROL] [Concomitant]
     Dosage: 150 , UNK

REACTIONS (9)
  - Gastric disorder [Unknown]
  - Blood pressure increased [Unknown]
  - Neoplasm progression [Unknown]
  - Stomatitis [Unknown]
  - Abdominal pain [Unknown]
  - Blood creatinine increased [Unknown]
  - Blood alkaline phosphatase increased [Unknown]
  - Blood glucose increased [Unknown]
  - Pain in extremity [Unknown]

NARRATIVE: CASE EVENT DATE: 20220920
